FAERS Safety Report 25773491 (Version 1)
Quarter: 2025Q3

REPORT INFORMATION
  Report Type: Spontaneous
  Country: CN (occurrence: CN)
  Receive Date: 20250908
  Receipt Date: 20250908
  Transmission Date: 20251021
  Serious: Yes (Life-Threatening, Hospitalization, Other)
  Sender: BRACCO
  Company Number: CN-BRACCO-2025CN05981

PATIENT
  Age: 68 Year
  Sex: Female

DRUGS (7)
  1. SULFUR HEXAFLUORIDE [Suspect]
     Active Substance: SULFUR HEXAFLUORIDE
     Indication: Ultrasound scan
     Route: 042
     Dates: start: 20250828, end: 20250828
  2. SULFUR HEXAFLUORIDE [Suspect]
     Active Substance: SULFUR HEXAFLUORIDE
     Indication: Ultrasound scan
     Route: 042
     Dates: start: 20250828, end: 20250828
  3. SULFUR HEXAFLUORIDE [Suspect]
     Active Substance: SULFUR HEXAFLUORIDE
     Indication: Ultrasound scan
     Route: 042
     Dates: start: 20250828, end: 20250828
  4. EUTHYROX [Concomitant]
     Active Substance: LEVOTHYROXINE SODIUM
     Route: 048
  5. METFORMIN [Concomitant]
     Active Substance: METFORMIN HYDROCHLORIDE
     Route: 048
  6. REPAGLINIDE [Concomitant]
     Active Substance: REPAGLINIDE
     Route: 048
  7. VALSARTAN [Concomitant]
     Active Substance: VALSARTAN
     Route: 048

REACTIONS (5)
  - Shock [Recovered/Resolved]
  - Hypotension [Recovered/Resolved]
  - Dizziness [Recovered/Resolved]
  - Abdominal pain [Recovered/Resolved]
  - Discomfort [Recovered/Resolved]

NARRATIVE: CASE EVENT DATE: 20250828
